FAERS Safety Report 6332202-1 (Version None)
Quarter: 2009Q3

REPORT INFORMATION
  Report Type: 
  Country: None (occurrence: None)
  Receive Date: 20090828
  Receipt Date: 20090818
  Transmission Date: 20100115
  Serious: Yes (Death)
  Sender: FDA-Public Use
  Company Number: KR-PFIZER INC-2009249983

PATIENT
  Age: 39 Year

DRUGS (4)
  1. VORICONAZOLE [Suspect]
     Dosage: 200 MG, 2X/DAY
     Route: 048
     Dates: start: 20081019, end: 20081023
  2. RULID [Concomitant]
     Indication: ANTIBIOTIC THERAPY
     Dosage: UNK
     Route: 048
     Dates: start: 20081019, end: 20081023
  3. K-CONTIN CONTINUS [Concomitant]
     Indication: MINERAL SUPPLEMENTATION
     Dosage: UNK
     Route: 048
     Dates: start: 20081019, end: 20081023
  4. ALL OTHER THERAPEUTIC PRODUCTS [Concomitant]
     Indication: ANTIBIOTIC THERAPY
     Dosage: UNK
     Route: 048
     Dates: start: 20081019, end: 20081023

REACTIONS (2)
  - CARDIAC ARREST [None]
  - RENAL FAILURE ACUTE [None]
